FAERS Safety Report 11359879 (Version 1)
Quarter: 2015Q3

REPORT INFORMATION
  Report Type: Report from Study
  Country: DE (occurrence: DE)
  Receive Date: 20150809
  Receipt Date: 20150809
  Transmission Date: 20151125
  Serious: Yes (Hospitalization)
  Sender: FDA-Public Use
  Company Number: DE-ABBVIE-15K-062-1440213-00

PATIENT
  Age: 26 Year
  Sex: Male
  Weight: 63 kg

DRUGS (2)
  1. AZATHIOPRINE. [Suspect]
     Active Substance: AZATHIOPRINE
     Indication: PRODUCT USED FOR UNKNOWN INDICATION
     Route: 065
     Dates: start: 20140728
  2. HUMIRA [Suspect]
     Active Substance: ADALIMUMAB
     Indication: CROHN^S DISEASE
     Route: 065

REACTIONS (2)
  - Abscess [Not Recovered/Not Resolved]
  - Anal fistula [Not Recovered/Not Resolved]

NARRATIVE: CASE EVENT DATE: 20150726
